FAERS Safety Report 8520577-4 (Version None)
Quarter: 2012Q3

REPORT INFORMATION
  Report Type: 
  Country: None (occurrence: None)
  Receive Date: 20120719
  Receipt Date: 20120706
  Transmission Date: 20120928
  Serious: Yes (Hospitalization)
  Sender: FDA-Public Use
  Company Number: NL-NAPPMUNDI-GBR-2012-0010993

PATIENT
  Age: 87 Year
  Sex: Female

DRUGS (2)
  1. BUPRENORPHINE [Suspect]
     Indication: CANCER PAIN
     Dosage: 5 MCG, Q1H
     Route: 062
     Dates: start: 20120402
  2. ACETAMINOPHEN [Concomitant]
     Dosage: 500 MG, UNK
     Route: 065
     Dates: start: 20111114

REACTIONS (1)
  - EPILEPSY [None]
